FAERS Safety Report 14146535 (Version 2)
Quarter: 2018Q1

REPORT INFORMATION
  Report Type: Report from Study
  Country: US (occurrence: US)
  Receive Date: 20171031
  Receipt Date: 20180330
  Transmission Date: 20180508
  Serious: No
  Sender: FDA-Public Use
  Company Number: PHHY2017US120769

PATIENT
  Age: 41 Year
  Sex: Female

DRUGS (4)
  1. BENEFIBER [Concomitant]
     Active Substance: STARCH, WHEAT
     Indication: CONSTIPATION
     Dosage: UNK
     Route: 065
     Dates: start: 20160201, end: 20160201
  2. PERI-COLACE [Concomitant]
     Active Substance: CASANTHRANOL\DOCUSATE SODIUM
     Indication: CONSTIPATION
     Dosage: UNK
     Route: 065
     Dates: start: 20160201, end: 20160624
  3. OMNIPAQUE [Concomitant]
     Active Substance: IOHEXOL
     Indication: PRODUCT USED FOR UNKNOWN INDICATION
     Dosage: UNK
     Route: 065
     Dates: start: 20160201, end: 20160201
  4. GILENYA [Suspect]
     Active Substance: FINGOLIMOD HYDROCHLORIDE
     Indication: MULTIPLE SCLEROSIS
     Dosage: UNK, QD
     Route: 048

REACTIONS (5)
  - Parotitis [Recovered/Resolved]
  - Aspartate aminotransferase increased [Recovering/Resolving]
  - Lymphocyte count increased [Unknown]
  - Tooth infection [Recovered/Resolved]
  - White blood cell count decreased [Unknown]

NARRATIVE: CASE EVENT DATE: 20150821
